FAERS Safety Report 10219017 (Version 1)
Quarter: 2014Q2

REPORT INFORMATION
  Report Type: Spontaneous
  Country: US (occurrence: None)
  Receive Date: 20140604
  Receipt Date: 20140604
  Transmission Date: 20141212
  Serious: Yes (Other)
  Sender: FDA-Public Use
  Company Number: None

PATIENT
  Age: 27 Year
  Sex: Female
  Weight: 68.95 kg

DRUGS (2)
  1. JUNEL [Suspect]
     Indication: UTERINE LEIOMYOMA
     Dosage: ONE PILL DAILY ONCE DAILY TAKEN BY MOUTH
     Route: 048
     Dates: start: 20140521, end: 20140603
  2. JUNEL [Suspect]
     Indication: MENSTRUATION IRREGULAR
     Dosage: ONE PILL DAILY ONCE DAILY TAKEN BY MOUTH
     Route: 048
     Dates: start: 20140521, end: 20140603

REACTIONS (5)
  - Dyspnoea [None]
  - Chest discomfort [None]
  - Asthenia [None]
  - Decreased appetite [None]
  - Vaginal discharge [None]
